FAERS Safety Report 11106709 (Version 2)
Quarter: 2015Q2

REPORT INFORMATION
  Report Type: Spontaneous
  Country: DE (occurrence: DE)
  Receive Date: 20150512
  Receipt Date: 20150604
  Transmission Date: 20150821
  Serious: Yes (Other)
  Sender: FDA-Public Use
  Company Number: DE-PFIZER INC-2015155040

PATIENT
  Sex: Female

DRUGS (3)
  1. LYRICA [Suspect]
     Active Substance: PREGABALIN
     Dosage: 75 MG, UNK
     Dates: start: 20130719, end: 20130801
  2. LYRICA [Suspect]
     Active Substance: PREGABALIN
     Dosage: 50 MG, UNK
     Dates: start: 20130712, end: 20130718
  3. LYRICA [Suspect]
     Active Substance: PREGABALIN
     Dosage: 225 MG, UNK
     Dates: start: 20130802, end: 20140623

REACTIONS (19)
  - Erythema [Not Recovered/Not Resolved]
  - Peripheral coldness [Not Recovered/Not Resolved]
  - Visual acuity reduced [Not Recovered/Not Resolved]
  - Abdominal distension [Not Recovered/Not Resolved]
  - Vascular stenosis [Unknown]
  - Skin warm [Not Recovered/Not Resolved]
  - Flatulence [Unknown]
  - Hair colour changes [Unknown]
  - Malaise [Unknown]
  - Cheilitis [Not Recovered/Not Resolved]
  - Hypertension [Unknown]
  - Pruritus [Not Recovered/Not Resolved]
  - Diplopia [Unknown]
  - Syncope [Unknown]
  - Dizziness [Not Recovered/Not Resolved]
  - Gait disturbance [Not Recovered/Not Resolved]
  - Head discomfort [Not Recovered/Not Resolved]
  - Body temperature increased [Unknown]
  - Photopsia [Unknown]

NARRATIVE: CASE EVENT DATE: 20140816
